FAERS Safety Report 18710246 (Version 2)
Quarter: 2025Q2

REPORT INFORMATION
  Report Type: Spontaneous
  Country: IT (occurrence: IT)
  Receive Date: 20210107
  Receipt Date: 20250628
  Transmission Date: 20250717
  Serious: Yes (Hospitalization, Other)
  Sender: AUROBINDO
  Company Number: IT-PFM-2020-22436

PATIENT
  Age: 66 Year
  Sex: Male

DRUGS (6)
  1. AZITHROMYCIN [Interacting]
     Active Substance: AZITHROMYCIN
     Indication: COVID-19 pneumonia
     Route: 065
  2. AZITHROMYCIN [Interacting]
     Active Substance: AZITHROMYCIN
     Route: 065
  3. TOCILIZUMAB [Suspect]
     Active Substance: TOCILIZUMAB
     Indication: COVID-19 pneumonia
     Route: 065
  4. ENOXAPARIN [Suspect]
     Active Substance: ENOXAPARIN
     Indication: COVID-19 pneumonia
     Route: 065
  5. METHYLPREDNISOLONE [Suspect]
     Active Substance: METHYLPREDNISOLONE
     Indication: COVID-19 pneumonia
     Route: 065
  6. HYDROXYCHLOROQUINE [Interacting]
     Active Substance: HYDROXYCHLOROQUINE
     Indication: COVID-19 pneumonia
     Route: 065

REACTIONS (4)
  - Cholecystitis acute [Recovered/Resolved]
  - Drug interaction [Unknown]
  - Product use in unapproved indication [Unknown]
  - Off label use [Unknown]
